FAERS Safety Report 13703550 (Version 5)
Quarter: 2017Q3

REPORT INFORMATION
  Report Type: Spontaneous
  Country: US (occurrence: US)
  Receive Date: 20170629
  Receipt Date: 20170913
  Transmission Date: 20171127
  Serious: Yes (Hospitalization)
  Sender: FDA-Public Use
  Company Number: US-ACTELION-A-NJ2017-155949

PATIENT
  Age: 70 Year
  Sex: Male

DRUGS (2)
  1. UPTRAVI [Suspect]
     Active Substance: SELEXIPAG
     Dosage: 200 MCG IN AM, 400 MCG IN PM
     Route: 048
     Dates: start: 20170710
  2. UPTRAVI [Suspect]
     Active Substance: SELEXIPAG
     Indication: PULMONARY ARTERIAL HYPERTENSION
     Dosage: 200 MCG, BID
     Route: 048
     Dates: start: 20170609, end: 20170622

REACTIONS (12)
  - Haematocrit decreased [Unknown]
  - Insomnia [Unknown]
  - Feeling abnormal [Unknown]
  - Haemoglobin decreased [Unknown]
  - Depression [Unknown]
  - Fatigue [Not Recovered/Not Resolved]
  - Dyspnoea [Recovering/Resolving]
  - Malaise [Unknown]
  - Disorientation [Unknown]
  - Ammonia increased [Unknown]
  - Epistaxis [Recovered/Resolved]
  - Gingival bleeding [Recovered/Resolved]

NARRATIVE: CASE EVENT DATE: 201706
